FAERS Safety Report 8830842 (Version 2)
Quarter: 2012Q4

REPORT INFORMATION
  Report Type: 
  Country: ES (occurrence: ES)
  Receive Date: 20121009
  Receipt Date: 20121109
  Transmission Date: 20130627
  Serious: Yes (Other)
  Sender: FDA-Public Use
  Company Number: ES-GE HEALTHCARE MEDICAL DIAGNOSTICS-OMPQ-NO-1209S-0977

PATIENT
  Age: 48 Year
  Sex: Male

DRUGS (1)
  1. OMNIPAQUE [Suspect]
     Indication: POLYNEUROPATHY
     Route: 065
     Dates: start: 20120919, end: 20120919

REACTIONS (5)
  - Sneezing [Recovered/Resolved]
  - Erythema [Recovered/Resolved]
  - Lacrimation increased [Recovered/Resolved]
  - Eyelid oedema [Recovered/Resolved]
  - Feeling hot [Recovered/Resolved]
